FAERS Safety Report 11328982 (Version 1)
Quarter: 2015Q3

REPORT INFORMATION
  Report Type: Spontaneous
  Country: JP (occurrence: JP)
  Receive Date: 20150802
  Receipt Date: 20150802
  Transmission Date: 20151125
  Serious: Yes (Other)
  Sender: FDA-Public Use
  Company Number: JP-TEVA-582779ISR

PATIENT
  Age: 65 Year
  Sex: Female

DRUGS (6)
  1. SIMEPREVIR [Concomitant]
     Active Substance: SIMEPREVIR
     Indication: HEPATITIS C
     Route: 065
  2. RIBAVIRIN. [Interacting]
     Active Substance: RIBAVIRIN
     Dosage: 400 MILLIGRAM DAILY;
     Route: 065
  3. RIBAVIRIN. [Interacting]
     Active Substance: RIBAVIRIN
     Indication: HEPATITIS C
     Dosage: 600 MILLIGRAM DAILY;
     Route: 065
  4. PEGYLATED INTERFERON NOS [Concomitant]
     Active Substance: PEGINTERFERON ALFA-2A OR PEGINTERFERON ALFA-2B OR PEGINTERFERON BETA-1A OR PEGINTERFERON LAMBDA-1A
     Indication: HEPATITIS C
     Route: 065
  5. MYCOPHENOLATE MOFETIL. [Suspect]
     Active Substance: MYCOPHENOLATE MOFETIL
     Indication: IMMUNOSUPPRESSANT DRUG THERAPY
     Dosage: 500 MILLIGRAM DAILY;
     Route: 065
  6. TACROLIMUS. [Concomitant]
     Active Substance: TACROLIMUS
     Indication: IMMUNOSUPPRESSANT DRUG THERAPY
     Dosage: 1.2 MILLIGRAM DAILY;
     Route: 065

REACTIONS (3)
  - Bone marrow failure [Recovered/Resolved]
  - Haemolytic anaemia [Recovered/Resolved]
  - Drug interaction [Recovered/Resolved]
